FAERS Safety Report 26187079 (Version 2)
Quarter: 2025Q4

REPORT INFORMATION
  Report Type: Spontaneous
  Country: US (occurrence: US)
  Receive Date: 20251222
  Receipt Date: 20251224
  Transmission Date: 20260118
  Serious: Yes (Hospitalization)
  Sender: MYLAN
  Company Number: US-MYLANLABS-2025M1108076

PATIENT
  Age: 58 Year
  Sex: Female

DRUGS (2)
  1. DEXAMETHASONE [Suspect]
     Active Substance: DEXAMETHASONE
     Indication: Arthralgia
     Dosage: UNK, RECEIVED OTC PILL
     Route: 061
  2. DICLOFENAC [Concomitant]
     Active Substance: DICLOFENAC
     Indication: Arthralgia
     Dosage: UNK, RECEIVED OTC PILL
     Route: 061

REACTIONS (3)
  - Adrenal insufficiency [Recovering/Resolving]
  - Hyponatraemia [Recovering/Resolving]
  - Cardiac failure [Recovering/Resolving]
